FAERS Safety Report 25972053 (Version 2)
Quarter: 2025Q4

REPORT INFORMATION
  Report Type: Spontaneous
  Country: US (occurrence: US)
  Receive Date: 20251029
  Receipt Date: 20251103
  Transmission Date: 20260117
  Serious: No
  Sender: ROCHE
  Company Number: US-ROCHE-10000419873

PATIENT
  Age: 67 Year
  Sex: Female
  Weight: 69.1 kg

DRUGS (1)
  1. ROZLYTREK [Suspect]
     Active Substance: ENTRECTINIB
     Indication: Papillary thyroid cancer
     Route: 048
     Dates: start: 20241207

REACTIONS (2)
  - Off label use [Unknown]
  - No adverse event [Unknown]
